FAERS Safety Report 9186767 (Version 3)
Quarter: 2014Q2

REPORT INFORMATION
  Report Type: Report from Study
  Country: AU (occurrence: AU)
  Receive Date: 20130325
  Receipt Date: 20140425
  Transmission Date: 20141212
  Serious: Yes (Other)
  Sender: FDA-Public Use
  Company Number: AU-ROCHE-1206115

PATIENT
  Sex: Female

DRUGS (2)
  1. ACTEMRA [Suspect]
     Indication: RHEUMATOID ARTHRITIS
     Route: 042
     Dates: start: 20110311
  2. ACTEMRA [Suspect]
     Route: 042

REACTIONS (4)
  - Malaise [Unknown]
  - Gastric infection [Unknown]
  - Headache [Unknown]
  - Oropharyngeal pain [Unknown]
